FAERS Safety Report 20577875 (Version 1)
Quarter: 2022Q1

REPORT INFORMATION
  Report Type: Spontaneous
  Country: US (occurrence: US)
  Receive Date: 20220310
  Receipt Date: 20220310
  Transmission Date: 20220424
  Serious: Yes (Other)
  Sender: FDA-Public Use
  Company Number: US-SAOL THERAPEUTICS-2022SAO00004

PATIENT
  Age: 8 Year
  Sex: Male
  Weight: 24.2 kg

DRUGS (12)
  1. LIORESAL [Suspect]
     Active Substance: BACLOFEN
     Indication: Diplegia
     Dosage: 410.9 ?G, \DAY
     Route: 037
     Dates: start: 20210823
  2. LIORESAL [Suspect]
     Active Substance: BACLOFEN
     Dosage: 420 ?G, \DAY
     Route: 037
  3. ALBUTEROL [Concomitant]
     Active Substance: ALBUTEROL
     Dosage: 2 PUFFS, AS NEEDED Q4H
  4. EPIPEN JR [Concomitant]
     Active Substance: EPINEPHRINE
     Indication: Anaphylactic reaction
     Dosage: 0.3 ML (0.15 MG TOTAL), AS NEEDED FOR ANAPHYLASIS
     Route: 030
     Dates: start: 20211209
  5. MIRALAX [Concomitant]
     Active Substance: POLYETHYLENE GLYCOL 3350
     Dosage: DAILY
  6. DESOWEN [Concomitant]
     Active Substance: DESONIDE
     Dosage: AS NEEDED
     Route: 061
  7. VALIUM [Concomitant]
     Active Substance: DIAZEPAM
     Dosage: UNK
     Route: 048
     Dates: start: 20200306
  8. EMLA [Concomitant]
     Active Substance: LIDOCAINE\PRILOCAINE
     Dosage: AS NEEDED APPLY TO DIRECTED AREA 1 HR BEFORE PROCEDURE
     Route: 061
     Dates: start: 20190107
  9. BACTROBAN [Concomitant]
     Active Substance: MUPIROCIN\MUPIROCIN CALCIUM
     Dosage: AS NEEDED
     Dates: start: 20170110
  10. PROTOPIC [Concomitant]
     Active Substance: TACROLIMUS
     Dosage: AS NEEDED
     Route: 061
     Dates: start: 20160804
  11. KENALOG [Concomitant]
     Active Substance: TRIAMCINOLONE ACETONIDE
     Dosage: AS NEEDED
     Route: 061
  12. BOTOX [Concomitant]
     Active Substance: ONABOTULINUMTOXINA

REACTIONS (7)
  - Dystonia [Unknown]
  - Drug withdrawal syndrome [Unknown]
  - Tremor [Unknown]
  - Hypertonia [Unknown]
  - Insomnia [Unknown]
  - Agitation [Unknown]
  - Device issue [Recovered/Resolved]

NARRATIVE: CASE EVENT DATE: 20220107
